FAERS Safety Report 8956332 (Version 1)
Quarter: 2012Q4

REPORT INFORMATION
  Report Type: 
  Country: CN (occurrence: CN)
  Receive Date: 20121210
  Receipt Date: 20121210
  Transmission Date: 20130627
  Serious: Yes (Other)
  Sender: FDA-Public Use
  Company Number: CN-JNJFOC-20121113254

PATIENT
  Age: 6 Month
  Sex: Male
  Weight: 9.4 kg

DRUGS (3)
  1. MOTRIN [Suspect]
     Route: 048
  2. MOTRIN [Suspect]
     Indication: PYREXIA
     Dosage: 6ml
     Route: 048
     Dates: start: 20121124, end: 20121124
  3. CHINESE MEDICATION [Suspect]
     Indication: NASOPHARYNGITIS
     Dates: start: 20121124

REACTIONS (4)
  - Laboratory test abnormal [Unknown]
  - Transaminases increased [Unknown]
  - Incorrect dose administered [Unknown]
  - Hyperhidrosis [Recovered/Resolved]
